FAERS Safety Report 20165928 (Version 1)
Quarter: 2021Q4

REPORT INFORMATION
  Report Type: Spontaneous
  Country: CN (occurrence: CN)
  Receive Date: 20211209
  Receipt Date: 20211209
  Transmission Date: 20220304
  Serious: Yes (Hospitalization)
  Sender: FDA-Public Use
  Company Number: CN-BAXTER-2021BAX038653

PATIENT
  Age: 24 Year
  Sex: Female
  Weight: 53 kg

DRUGS (2)
  1. IFOSFAMIDE [Suspect]
     Active Substance: IFOSFAMIDE
     Indication: Osteosarcoma
     Dosage: IFOSPHAMIDE 4.5G + NS 500ML
     Route: 041
     Dates: start: 20210206, end: 20210209
  2. SODIUM CHLORIDE [Suspect]
     Active Substance: SODIUM CHLORIDE
     Indication: Medication dilution
     Dosage: IFOSPHAMIDE 4.5G + NS 500ML
     Route: 041
     Dates: start: 20210206, end: 20210209

REACTIONS (1)
  - Myelosuppression [Recovering/Resolving]

NARRATIVE: CASE EVENT DATE: 20210213
